FAERS Safety Report 5597224-7 (Version None)
Quarter: 2008Q1

REPORT INFORMATION
  Report Type: 
  Country: None (occurrence: None)
  Receive Date: 20080121
  Receipt Date: 20080114
  Transmission Date: 20080703
  Serious: Yes (Hospitalization, Other)
  Sender: FDA-Public Use
  Company Number: PHBS2008JP00900

PATIENT
  Age: 17 Year
  Sex: Male

DRUGS (10)
  1. CYTARABINE [Concomitant]
     Dosage: 8 G/M2
  2. CYCLOPHOSPHAMIDE [Concomitant]
     Dosage: 120 MG/KG
  3. IRRADIATION [Concomitant]
     Dosage: 1200 CGY
  4. METHOTREXATE [Concomitant]
     Indication: STEM CELL TRANSPLANT
     Route: 065
  5. TOSUFLOXACIN [Concomitant]
  6. SULFAMETHOXAZOLE AND TRIMETHOPRIM [Concomitant]
  7. FLUCONAZOLE [Concomitant]
  8. CYCLOSPORINE [Suspect]
     Indication: STEM CELL TRANSPLANT
     Route: 065
  9. CYCLOSPORINE [Suspect]
     Dosage: 50 MG/D
     Route: 065
  10. CYCLOSPORINE [Suspect]
     Dosage: 100 MG/D
     Route: 065

REACTIONS (16)
  - ACUTE GRAFT VERSUS HOST DISEASE IN SKIN [None]
  - BLOOD BETA-D-GLUCAN INCREASED [None]
  - CHEST PAIN [None]
  - CHRONIC GRAFT VERSUS HOST DISEASE [None]
  - DYSPNOEA [None]
  - DYSPNOEA EXERTIONAL [None]
  - HEPATIC FUNCTION ABNORMAL [None]
  - HYPOGAMMAGLOBULINAEMIA [None]
  - LYMPHOPENIA [None]
  - NOCARDIOSIS [None]
  - NODULE [None]
  - OBLITERATIVE BRONCHIOLITIS [None]
  - PNEUMOMEDIASTINUM [None]
  - PRODUCTIVE COUGH [None]
  - PYREXIA [None]
  - SUBCUTANEOUS EMPHYSEMA [None]
